FAERS Safety Report 5514347-9 (Version None)
Quarter: 2007Q4

REPORT INFORMATION
  Report Type: 
  Country: None (occurrence: None)
  Receive Date: 20071113
  Receipt Date: 20070419
  Transmission Date: 20080405
  Serious: No
  Sender: FDA-Public Use
  Company Number: A0648001A

PATIENT
  Age: 74 Year
  Sex: Female

DRUGS (6)
  1. COREG [Suspect]
     Dosage: 25MG TWICE PER DAY
     Route: 048
     Dates: start: 20030101
  2. PREDNISOLONE ACETATE [Suspect]
     Route: 047
     Dates: start: 20070418
  3. SPIRONOLACTONE [Concomitant]
  4. DIGOXIN [Concomitant]
  5. WARFARIN SODIUM [Concomitant]
  6. FUROSEMIDE [Concomitant]

REACTIONS (2)
  - FEELING JITTERY [None]
  - PALPITATIONS [None]
